FAERS Safety Report 10561509 (Version 1)
Quarter: 2014Q4

REPORT INFORMATION
  Report Type: Spontaneous
  Country: US (occurrence: US)
  Receive Date: 20141103
  Receipt Date: 20141103
  Transmission Date: 20150529
  Serious: Yes (Hospitalization)
  Sender: FDA-Public Use
  Company Number: US-TEVA-519162USA

PATIENT
  Age: 85 Year
  Sex: Female

DRUGS (1)
  1. CARBAMAZEPINE. [Suspect]
     Active Substance: CARBAMAZEPINE
     Indication: NEURALGIA
     Dates: start: 201409, end: 201410

REACTIONS (4)
  - Abasia [Recovered/Resolved]
  - Headache [Unknown]
  - Meningitis [Unknown]
  - Neck pain [Unknown]

NARRATIVE: CASE EVENT DATE: 20141019
